FAERS Safety Report 14308452 (Version 1)
Quarter: 2017Q4

REPORT INFORMATION
  Report Type: Spontaneous
  Country: CH (occurrence: CH)
  Receive Date: 20171220
  Receipt Date: 20171220
  Transmission Date: 20180321
  Serious: Yes (Hospitalization, Other)
  Sender: FDA-Public Use
  Company Number: CH-BAYER-2017-238960

PATIENT
  Age: 76 Year
  Sex: Male

DRUGS (13)
  1. LISINOPRIL. [Suspect]
     Active Substance: LISINOPRIL
     Dosage: 10 MG, BID
     Route: 048
  2. TOREM [Suspect]
     Active Substance: TORSEMIDE
     Dosage: 5 MG, OM
     Route: 048
  3. JANUVIA [Concomitant]
     Active Substance: SITAGLIPTIN PHOSPHATE
     Dosage: 100 MG, BID
     Route: 048
  4. TAMSULOSIN [Concomitant]
     Active Substance: TAMSULOSIN
     Dosage: 0.4 MG, QD
     Route: 048
  5. PREDNISON GALEPHARM [Concomitant]
     Active Substance: PREDNISONE
     Dosage: 5 MG, BID
     Route: 048
  6. BILOL [Concomitant]
     Active Substance: BISOPROLOL
     Dosage: 2.5 MG, BID
     Route: 048
  7. ATORVASTATIN [Concomitant]
     Active Substance: ATORVASTATIN
     Dosage: 40 MG, QD
     Route: 048
  8. PANTOZOL [Suspect]
     Active Substance: PANTOPRAZOLE SODIUM
     Dosage: 40 MG, QD
     Route: 048
  9. METOJECT [METHOTREXATE] [Interacting]
     Active Substance: METHOTREXATE
     Indication: PSORIATIC ARTHROPATHY
     Dosage: 15 MG, OW
     Route: 058
  10. FOLVITE [Concomitant]
     Active Substance: FOLIC ACID
     Dosage: 1 MG, OM
     Route: 048
  11. ASPIRIN CARDIO 100 MG [Suspect]
     Active Substance: ASPIRIN
     Dosage: 100 MG, OM
     Route: 048
  12. ADALAT RETARD 20 MG [Concomitant]
     Dosage: 20 MG, TID
     Route: 048
  13. METFORMIN [Concomitant]
     Active Substance: METFORMIN HYDROCHLORIDE
     Dosage: 1000 MG, BID
     Route: 048

REACTIONS (7)
  - Pancytopenia [Recovering/Resolving]
  - Drug interaction [Recovering/Resolving]
  - Labelled drug-drug interaction medication error [Recovering/Resolving]
  - Mucosal inflammation [Recovering/Resolving]
  - Bronchial secretion retention [Recovering/Resolving]
  - Acute kidney injury [Recovering/Resolving]
  - Contraindicated product administered [Recovering/Resolving]
